FAERS Safety Report 23980452 (Version 1)
Quarter: 2024Q2

REPORT INFORMATION
  Report Type: Spontaneous
  Country: FI (occurrence: FI)
  Receive Date: 20240617
  Receipt Date: 20240617
  Transmission Date: 20240716
  Serious: Yes (Other)
  Sender: FDA-Public Use
  Company Number: None

PATIENT
  Age: 41 Year
  Sex: Male

DRUGS (1)
  1. TESTOSTERONE [Suspect]
     Active Substance: TESTOSTERONE
     Indication: Androgen deficiency
     Dosage: 4ML IM, TESTOSTERONE RATIO PHARM
     Route: 030
     Dates: start: 20240529

REACTIONS (8)
  - Anaphylactic shock [Recovered/Resolved]
  - Therapeutic response changed [Recovered/Resolved]
  - Cough [Recovered/Resolved]
  - Asthenia [Recovered/Resolved]
  - Cold sweat [Recovered/Resolved]
  - Microembolism [Recovered/Resolved]
  - Pharyngeal disorder [Recovered/Resolved]
  - Pallor [Recovered/Resolved]

NARRATIVE: CASE EVENT DATE: 20240529
